FAERS Safety Report 13949825 (Version 1)
Quarter: 2017Q3

REPORT INFORMATION
  Report Type: Spontaneous
  Country: US (occurrence: US)
  Receive Date: 20170908
  Receipt Date: 20170908
  Transmission Date: 20171128
  Serious: Yes (Other)
  Sender: FDA-Public Use
  Company Number: US-ROCHE-1137241

PATIENT
  Sex: Male

DRUGS (5)
  1. RITUXAN [Suspect]
     Active Substance: RITUXIMAB
     Indication: B-CELL LYMPHOMA
     Route: 065
     Dates: start: 19990306
  2. AVANDIA [Concomitant]
     Active Substance: ROSIGLITAZONE MALEATE
     Route: 065
  3. GAMIMUNE [Concomitant]
     Active Substance: HUMAN IMMUNOGLOBULIN G
  4. RITUXAN [Suspect]
     Active Substance: RITUXIMAB
     Indication: OFF LABEL USE
     Route: 065
     Dates: start: 200012
  5. DIABETA [Concomitant]
     Active Substance: GLYBURIDE
     Route: 048

REACTIONS (1)
  - Thrombocytopenia [Not Recovered/Not Resolved]
